FAERS Safety Report 4353882-6 (Version None)
Quarter: 2004Q2

REPORT INFORMATION
  Report Type: 
  Country: None (occurrence: None)
  Receive Date: 20040506
  Receipt Date: 20031017
  Transmission Date: 20050107
  Serious: Yes (Other)
  Sender: FDA-Public Use
  Company Number: PHBS2003JP11481

PATIENT
  Age: 78 Year
  Sex: Female

DRUGS (10)
  1. TAKEPRON [Concomitant]
     Indication: GASTRIC ULCER
     Dosage: 30 MG/DAY
     Route: 048
     Dates: start: 20030730, end: 20030814
  2. ASPIRIN [Concomitant]
     Indication: THROMBOSIS
     Dosage: 100 MG/DAY
     Route: 048
     Dates: start: 20030705, end: 20030724
  3. WARFARIN SODIUM [Concomitant]
     Indication: THROMBOSIS
     Dosage: 2 MG/DAY
     Route: 048
     Dates: start: 20030705, end: 20030715
  4. LASIX [Concomitant]
     Indication: CARDIAC FAILURE
     Dosage: 20 MG/DAY
     Route: 048
     Dates: start: 20030704, end: 20030729
  5. ALDACTONE-A [Concomitant]
     Indication: CARDIAC FAILURE
     Dosage: 25 MG/DAY
     Route: 048
     Dates: start: 20030705, end: 20030729
  6. NITRODERM [Suspect]
     Indication: MYOCARDIAL INFARCTION
     Dosage: 25 MG/DAY
     Route: 062
     Dates: start: 20030714, end: 20030807
  7. AMLODIPINE [Concomitant]
     Dosage: 5 MG/DAY
     Route: 048
  8. BLOPRESS [Concomitant]
     Dosage: 8 MG/DAY
     Route: 048
  9. ZANTAC [Concomitant]
     Indication: GASTRIC ULCER
     Dosage: 300 MG/DAY
     Route: 048
     Dates: start: 20030720, end: 20030729
  10. ASPARA [Concomitant]
     Dosage: 300 MG/DAY
     Route: 048

REACTIONS (3)
  - EOSINOPHILIA [None]
  - HYPERSENSITIVITY [None]
  - POSTOPERATIVE INFECTION [None]
